FAERS Safety Report 7556995-0 (Version None)
Quarter: 2011Q2

REPORT INFORMATION
  Report Type: 
  Country: None (occurrence: None)
  Receive Date: 20110620
  Receipt Date: 20110615
  Transmission Date: 20111010
  Serious: Yes (Death, Hospitalization, Other)
  Sender: FDA-Public Use
  Company Number: PHHY2011CA52163

PATIENT
  Sex: Male

DRUGS (7)
  1. KEMADRIN [Concomitant]
     Dosage: 5 MG, 2 TAB TID
  2. CLOZAPINE [Suspect]
     Indication: SCHIZOPHRENIA
     Dosage: 275 MG, HS
     Route: 048
     Dates: start: 20110316
  3. SEROQUEL [Concomitant]
     Dosage: 1100 MG, HS
  4. LOXAPINE HCL [Concomitant]
     Dosage: 50 MG, PRN TID
  5. RISPERDAL [Concomitant]
     Dosage: 2 MG, HS
  6. PAXIL [Concomitant]
     Dosage: 20 MG, HS
  7. ATROPINE [Concomitant]
     Dosage: EYE DROPS 1 % 2 DROPS QID

REACTIONS (4)
  - RESPIRATORY DISORDER [None]
  - ARRHYTHMIA [None]
  - PSYCHOTIC DISORDER [None]
  - PULMONARY EMBOLISM [None]
